FAERS Safety Report 18494405 (Version 5)
Quarter: 2021Q1

REPORT INFORMATION
  Report Type: Report from Study
  Country: None (occurrence: US)
  Receive Date: 20201112
  Receipt Date: 20210104
  Transmission Date: 20210419
  Serious: No
  Sender: FDA-Public Use
  Company Number: US-ABBVIE-20K-163-3638358-00

PATIENT
  Age: 17 Year
  Sex: Female
  Weight: 79.45 kg

DRUGS (3)
  1. HUMIRA [Suspect]
     Active Substance: ADALIMUMAB
     Indication: CROHN^S DISEASE
     Dosage: DAY 1?CITRATE FREE
     Route: 058
     Dates: start: 20201102, end: 20201102
  2. HUMIRA [Suspect]
     Active Substance: ADALIMUMAB
     Dosage: CITRATE FREE
     Route: 058
     Dates: start: 20201123, end: 20201123
  3. HUMIRA [Suspect]
     Active Substance: ADALIMUMAB
     Indication: CROHN^S DISEASE
     Route: 058
     Dates: start: 20201102

REACTIONS (18)
  - Loss of personal independence in daily activities [Unknown]
  - Eye swelling [Unknown]
  - Insomnia [Recovered/Resolved]
  - Postoperative wound infection [Unknown]
  - Nausea [Recovered/Resolved]
  - Rash [Unknown]
  - Procedural pain [Unknown]
  - Gait disturbance [Recovering/Resolving]
  - Depressed mood [Unknown]
  - Stress [Recovered/Resolved]
  - Device issue [Recovered/Resolved]
  - Vomiting [Recovered/Resolved]
  - Wrong technique in product usage process [Recovered/Resolved]
  - Buttock injury [Recovering/Resolving]
  - Abdominal pain upper [Recovering/Resolving]
  - Post procedural complication [Unknown]
  - Purulent discharge [Unknown]
  - Decreased appetite [Recovering/Resolving]

NARRATIVE: CASE EVENT DATE: 202011
